FAERS Safety Report 5154234-1 (Version None)
Quarter: 2006Q4

REPORT INFORMATION
  Report Type: 
  Country: None (occurrence: None)
  Receive Date: 20061114
  Receipt Date: 20061031
  Transmission Date: 20070319
  Serious: Yes (Hospitalization, Other)
  Sender: FDA-Public Use
  Company Number: DEP_0023_2006

PATIENT
  Age: 33 Year
  Sex: Female

DRUGS (2)
  1. METFORMIN [Suspect]
     Indication: WEIGHT CONTROL
     Dosage: 850 MG QDAY  A FEW DAYS
  2. METFORMIN [Suspect]
     Indication: WEIGHT CONTROL
     Dosage: DF

REACTIONS (1)
  - LEUKOCYTOCLASTIC VASCULITIS [None]
